FAERS Safety Report 9485859 (Version 2)
Quarter: 2013Q3

REPORT INFORMATION
  Report Type: Report from Study
  Country: US (occurrence: US)
  Receive Date: 20130829
  Receipt Date: 20130829
  Transmission Date: 20140515
  Serious: No
  Sender: FDA-Public Use
  Company Number: PHEH2013US010407

PATIENT
  Sex: Female

DRUGS (5)
  1. TASIGNA [Suspect]
     Route: 048
     Dates: start: 20121101
  2. BENADRYL                           /00647601/ [Concomitant]
  3. HYDROCORTISONE [Concomitant]
  4. ZOFRAN [Concomitant]
     Dosage: 8 MG, UNK
  5. TOPAMAX [Concomitant]
     Dosage: 50 MG, UNK

REACTIONS (3)
  - Skin discolouration [Unknown]
  - Cough [Unknown]
  - Rash [Unknown]
